FAERS Safety Report 9268467 (Version 1)
Quarter: 2013Q2

REPORT INFORMATION
  Report Type: Spontaneous
  Country: US (occurrence: US)
  Receive Date: 20130502
  Receipt Date: 20130502
  Transmission Date: 20140414
  Serious: No
  Sender: FDA-Public Use
  Company Number: US-ALEXION-A201202458

PATIENT
  Age: 8 Year
  Sex: Male
  Weight: 32 kg

DRUGS (6)
  1. SOLIRIS 300MG [Suspect]
     Indication: HAEMOLYTIC URAEMIC SYNDROME
     Dosage: 600 MG, QW
     Route: 042
     Dates: start: 20120620
  2. SOLIRIS 300MG [Suspect]
     Dosage: 600 MG, UNK
     Route: 042
     Dates: start: 20120721
  3. FERROUS SULFATE [Concomitant]
     Dosage: 325 MG, UNK
  4. LOSARTAN [Concomitant]
     Dosage: 25 MG, QD (AT HS)
  5. LOSARTAN [Concomitant]
     Dosage: 50 MG, QD (IN AM)
  6. SPIRONOLACTONE [Concomitant]
     Dosage: 25 MG, QD

REACTIONS (1)
  - Pharyngitis streptococcal [Recovered/Resolved]
